FAERS Safety Report 5420655-2 (Version None)
Quarter: 2007Q3

REPORT INFORMATION
  Report Type: 
  Country: None (occurrence: None)
  Receive Date: 20070813
  Receipt Date: 20070727
  Transmission Date: 20080115
  Serious: Yes (Hospitalization)
  Sender: FDA-Public Use
  Company Number: CIO07012175

PATIENT
  Sex: Male

DRUGS (1)
  1. METAMUCIL-2 [Suspect]
     Dosage: 1 TBSP, UNK FREQ FOR 21 DAYS, ORAL
     Route: 048

REACTIONS (2)
  - OVERDOSE [None]
  - PALPITATIONS [None]
